FAERS Safety Report 11087763 (Version 1)
Quarter: 2015Q2

REPORT INFORMATION
  Report Type: Spontaneous
  Country: UG (occurrence: None)
  Receive Date: 20150430
  Receipt Date: 20150430
  Transmission Date: 20150821
  Serious: Yes (Other)
  Sender: FDA-Public Use
  Company Number: UG2015GSK057314

PATIENT
  Age: 37 Year
  Sex: Male

DRUGS (5)
  1. LAMIVUDINE. [Suspect]
     Active Substance: LAMIVUDINE
     Indication: HIV INFECTION
     Dates: start: 20090611
  2. FLUCONAZOLE. [Concomitant]
     Active Substance: FLUCONAZOLE
  3. EFAVIRENZ [Suspect]
     Active Substance: EFAVIRENZ
     Indication: HIV INFECTION
     Dates: start: 20090611
  4. ZIDOVUDINE. [Suspect]
     Active Substance: ZIDOVUDINE
     Indication: HIV INFECTION
     Dates: start: 20090611
  5. AMPHOTERICIN [Concomitant]
     Active Substance: AMPHOTERICIN B

REACTIONS (15)
  - Abdominal tenderness [None]
  - Pyrexia [None]
  - Cryptococcosis [None]
  - Tachypnoea [None]
  - Pneumoperitoneum [None]
  - Intestinal perforation [None]
  - Vomiting [None]
  - Lymphadenopathy [None]
  - Immune reconstitution inflammatory syndrome [None]
  - Cough [None]
  - Peritonitis [None]
  - Appendix disorder [None]
  - Mass [None]
  - Abdominal pain [None]
  - Adhesion [None]
